FAERS Safety Report 15688415 (Version 1)
Quarter: 2018Q4

REPORT INFORMATION
  Report Type: Spontaneous
  Country: CH (occurrence: CH)
  Receive Date: 20181205
  Receipt Date: 20181205
  Transmission Date: 20190205
  Serious: Yes (Life-Threatening, Hospitalization, Other)
  Sender: FDA-Public Use
  Company Number: CH-TEVA-2018-CH-983852

PATIENT
  Age: 72 Year
  Sex: Male

DRUGS (15)
  1. PREGABALIN PFIZER 75 MG [Concomitant]
     Dosage: 150 MILLIGRAM DAILY;
     Route: 048
     Dates: start: 20180824
  2. XYZAL [Concomitant]
     Active Substance: LEVOCETIRIZINE DIHYDROCHLORIDE
     Route: 048
     Dates: start: 20180907, end: 20180912
  3. MEROPENEM. [Suspect]
     Active Substance: MEROPENEM
     Dates: start: 20180924, end: 20181010
  4. DUODART [Concomitant]
     Active Substance: DUTASTERIDE\TAMSULOSIN
     Dosage: 1 DOSAGE FORMS DAILY; 1 DOSAGE FORM=0.5/0.4 MG
     Route: 048
  5. KLACID 500 MG [Concomitant]
     Active Substance: CLARITHROMYCIN
     Dosage: 1000 MILLIGRAM DAILY;
     Route: 048
     Dates: start: 20180816, end: 20180817
  6. CUBICIN [Concomitant]
     Active Substance: DAPTOMYCIN
     Dosage: 850 MILLIGRAM DAILY;
     Route: 042
     Dates: start: 20180917, end: 20180921
  7. VANCOCIN [Suspect]
     Active Substance: VANCOMYCIN HYDROCHLORIDE
     Dosage: UNTIL FURTHER NOTICE
     Route: 042
     Dates: start: 20180922
  8. CEFEPIM [Concomitant]
     Active Substance: CEFEPIME HYDROCHLORIDE
     Dosage: 6 GRAM DAILY;
     Dates: start: 20180908, end: 20180908
  9. SPIRICORT [Concomitant]
     Active Substance: PREDNISOLONE
     Route: 048
     Dates: start: 20180907, end: 20180910
  10. KEFZOL [Suspect]
     Active Substance: CEFAZOLIN SODIUM
     Indication: STAPHYLOCOCCAL SEPSIS
     Route: 042
     Dates: start: 20180818, end: 20180907
  11. ASPIRIN CARDIO 100 MG [Concomitant]
     Active Substance: ASPIRIN
     Dosage: 100 MILLIGRAM DAILY;
     Route: 048
  12. METFORMIN [Concomitant]
     Active Substance: METFORMIN HYDROCHLORIDE
     Dosage: 1000 MILLIGRAM DAILY;
     Route: 048
  13. VANCOCIN [Suspect]
     Active Substance: VANCOMYCIN HYDROCHLORIDE
     Indication: STAPHYLOCOCCAL SEPSIS
     Route: 042
     Dates: start: 20180907, end: 20180910
  14. MEROPENEM. [Suspect]
     Active Substance: MEROPENEM
     Indication: STAPHYLOCOCCAL SEPSIS
     Dates: start: 20180910, end: 20180917
  15. CO-AMOXI [Concomitant]
     Active Substance: AMOXICILLIN\CLAVULANATE POTASSIUM
     Dosage: 13.2 GRAM DAILY;
     Route: 042
     Dates: start: 20180816, end: 20180818

REACTIONS (1)
  - Drug reaction with eosinophilia and systemic symptoms [Not Recovered/Not Resolved]

NARRATIVE: CASE EVENT DATE: 20180908
